FAERS Safety Report 9375974 (Version 1)
Quarter: 2013Q2

REPORT INFORMATION
  Report Type: Spontaneous
  Country: US (occurrence: US)
  Receive Date: 20130629
  Receipt Date: 20130629
  Transmission Date: 20140414
  Serious: No
  Sender: FDA-Public Use
  Company Number: US-B.I. PHARMACEUTICALS,INC./RIDGEFIELD-2013-BI-18287BP

PATIENT
  Age: 58 Year
  Sex: Male
  Weight: 77 kg

DRUGS (7)
  1. TRADJENTA [Suspect]
     Indication: TYPE 2 DIABETES MELLITUS
     Dosage: 5 MG
     Route: 048
     Dates: start: 201302, end: 201302
  2. LOVASTATIN [Concomitant]
     Indication: BLOOD CHOLESTEROL INCREASED
     Dosage: 20 MG
     Route: 048
  3. LISINOPRIL [Concomitant]
     Indication: HYPERTENSION
     Dosage: 10 MG
     Route: 048
  4. METFORMIN [Concomitant]
     Indication: TYPE 2 DIABETES MELLITUS
     Dosage: 2000 MG
     Route: 048
  5. GLIPIZIDE [Concomitant]
     Indication: TYPE 2 DIABETES MELLITUS
     Dosage: 20 MG
     Route: 048
  6. MORPHINE [Concomitant]
     Indication: BACK PAIN
     Dosage: 30 MG
     Route: 048
  7. ASPIRIN [Concomitant]
     Dosage: 325 MCG
     Route: 048

REACTIONS (2)
  - Back pain [Not Recovered/Not Resolved]
  - Sciatica [Not Recovered/Not Resolved]
